FAERS Safety Report 20636157 (Version 1)
Quarter: 2022Q1

REPORT INFORMATION
  Report Type: Spontaneous
  Country: US (occurrence: None)
  Receive Date: 20220324
  Receipt Date: 20220324
  Transmission Date: 20220423
  Serious: Yes (Hospitalization)
  Sender: FDA-Public Use
  Company Number: None

PATIENT
  Sex: Female

DRUGS (5)
  1. TACROLIMUS [Suspect]
     Active Substance: TACROLIMUS
     Indication: Renal transplant
     Dosage: FREQUENCY : DAILY;?
     Route: 048
     Dates: start: 20210326
  2. CAPECITABINE [Suspect]
     Active Substance: CAPECITABINE
  3. ELIQUIS [Suspect]
     Active Substance: APIXABAN
  4. PREDNISONE [Suspect]
     Active Substance: PREDNISONE
  5. PROZAC CAP 20MG [Concomitant]

REACTIONS (2)
  - Infection [None]
  - Product dose omission issue [None]
